FAERS Safety Report 8416504-0 (Version None)
Quarter: 2012Q2

REPORT INFORMATION
  Report Type: 
  Country: None (occurrence: None)
  Receive Date: 20120606
  Receipt Date: 20120531
  Transmission Date: 20120825
  Serious: Yes (Hospitalization)
  Sender: FDA-Public Use
  Company Number: US-GLAXOSMITHKLINE-A0875861A

PATIENT
  Age: 48 Year
  Sex: Male
  Weight: 125 kg

DRUGS (7)
  1. SERZONE [Concomitant]
  2. ALBUTEROL [Concomitant]
  3. INSULIN [Concomitant]
  4. FOSINOPRIL SODIUM [Concomitant]
  5. AVANDIA [Suspect]
     Indication: DIABETES MELLITUS
     Dosage: 8MG PER DAY
     Route: 048
     Dates: start: 19991001, end: 20070801
  6. GEMFIBROZIL [Concomitant]
  7. CLONAZEPAM [Concomitant]

REACTIONS (5)
  - CARDIAC FAILURE CONGESTIVE [None]
  - PLEURAL EFFUSION [None]
  - PERICARDIAL EFFUSION [None]
  - ATRIAL FIBRILLATION [None]
  - PERICARDITIS [None]
